FAERS Safety Report 20740386 (Version 1)
Quarter: 2022Q2

REPORT INFORMATION
  Report Type: Spontaneous
  Country: AU (occurrence: AU)
  Receive Date: 20220422
  Receipt Date: 20220422
  Transmission Date: 20220721
  Serious: Yes (Hospitalization)
  Sender: FDA-Public Use
  Company Number: AU-TASMAN PHARMA, INC.-2022TSM00062

PATIENT
  Sex: Female

DRUGS (38)
  1. CLOZAPINE [Suspect]
     Active Substance: CLOZAPINE
     Dosage: 200 MG
     Dates: start: 20190521, end: 20190526
  2. CLOZAPINE [Suspect]
     Active Substance: CLOZAPINE
     Dosage: 175 MG
     Dates: start: 20190527, end: 20190617
  3. CLOZAPINE [Suspect]
     Active Substance: CLOZAPINE
     Dosage: 175 MG
     Dates: start: 20190805, end: 20190827
  4. CLOZAPINE [Suspect]
     Active Substance: CLOZAPINE
     Dosage: 200 MG
     Dates: start: 20190828, end: 20190922
  5. CLOZAPINE [Suspect]
     Active Substance: CLOZAPINE
     Dosage: 275 MG
     Dates: start: 20200128, end: 20200203
  6. CLOZAPINE [Suspect]
     Active Substance: CLOZAPINE
     Dosage: 225 MG
     Dates: start: 20200225, end: 20200407
  7. CLOZAPINE [Suspect]
     Active Substance: CLOZAPINE
     Dosage: 225 MG
     Dates: start: 20200922, end: 20200926
  8. CLOZAPINE [Suspect]
     Active Substance: CLOZAPINE
     Dosage: 200 MG
     Dates: start: 20190618, end: 20190728
  9. CLOZAPINE [Suspect]
     Active Substance: CLOZAPINE
     Dosage: 175 MG
     Dates: start: 20190729, end: 20190804
  10. CLOZAPINE [Suspect]
     Active Substance: CLOZAPINE
     Dosage: 200 MG
     Dates: start: 20190923, end: 20191220
  11. CLOZAPINE [Suspect]
     Active Substance: CLOZAPINE
     Dosage: 175 MG
     Dates: start: 20191224, end: 20200102
  12. CLOZAPINE [Suspect]
     Active Substance: CLOZAPINE
     Dosage: 200 MG
     Dates: start: 20200103, end: 20200120
  13. CLOZAPINE [Suspect]
     Active Substance: CLOZAPINE
     Dosage: 225 MG
     Dates: start: 20200121, end: 20200127
  14. CLOZAPINE [Suspect]
     Active Substance: CLOZAPINE
     Dosage: 275 MG
     Dates: start: 20200204, end: 20200224
  15. CLOZAPINE [Suspect]
     Active Substance: CLOZAPINE
     Dosage: 225 MG
     Dates: start: 20200905, end: 20200921
  16. CLOZAPINE [Suspect]
     Active Substance: CLOZAPINE
     Dosage: 225 MG
     Dates: start: 20200917, end: 20200926
  17. CLOZAPINE [Suspect]
     Active Substance: CLOZAPINE
     Dosage: 50 MG
     Dates: start: 20201007, end: 20201013
  18. CLOZAPINE [Suspect]
     Active Substance: CLOZAPINE
     Dosage: 225 MG
     Dates: start: 202011, end: 20210105
  19. CLOZAPINE [Suspect]
     Active Substance: CLOZAPINE
     Dosage: 150 MG
     Dates: start: 20210119, end: 20210131
  20. CLOZAPINE [Suspect]
     Active Substance: CLOZAPINE
     Dosage: 300 MG
     Dates: start: 20210927, end: 20211017
  21. CLOZAPINE [Suspect]
     Active Substance: CLOZAPINE
     Dosage: 375 MG
     Dates: start: 20211018, end: 20211114
  22. CLOZAPINE [Suspect]
     Active Substance: CLOZAPINE
     Dosage: 400 MG
     Dates: start: 20211115, end: 20211214
  23. CLOZAPINE [Suspect]
     Active Substance: CLOZAPINE
     Dosage: UNK
     Dates: start: 20220406
  24. CLOZAPINE [Suspect]
     Active Substance: CLOZAPINE
     Dosage: 225 MG
     Dates: start: 20200408, end: 20200814
  25. CLOZAPINE [Suspect]
     Active Substance: CLOZAPINE
     Dosage: UNK
     Dates: start: 20200818, end: 20200819
  26. CLOZAPINE [Suspect]
     Active Substance: CLOZAPINE
     Dosage: 175 MG
     Dates: start: 20200828, end: 20200904
  27. CLOZAPINE [Suspect]
     Active Substance: CLOZAPINE
     Dosage: 25 MG
     Dates: start: 20201001, end: 20201006
  28. CLOZAPINE [Suspect]
     Active Substance: CLOZAPINE
     Dosage: 175 MG
     Dates: start: 20201014, end: 202011
  29. CLOZAPINE [Suspect]
     Active Substance: CLOZAPINE
     Dosage: 225 MG
     Dates: start: 202011, end: 202011
  30. CLOZAPINE [Suspect]
     Active Substance: CLOZAPINE
     Dosage: 150 MG
     Dates: start: 20210106, end: 20210118
  31. CLOZAPINE [Suspect]
     Active Substance: CLOZAPINE
     Dosage: 225 MG
     Dates: start: 20210201, end: 20210206
  32. CLOZAPINE [Suspect]
     Active Substance: CLOZAPINE
     Dosage: 700 MG
     Dates: start: 20210207, end: 20210217
  33. CLOZAPINE [Suspect]
     Active Substance: CLOZAPINE
     Dosage: 300 MG
     Dates: start: 20210218, end: 20210527
  34. CLOZAPINE [Suspect]
     Active Substance: CLOZAPINE
     Dosage: 700 MG
     Dates: start: 20210218, end: 20210610
  35. CLOZAPINE [Suspect]
     Active Substance: CLOZAPINE
     Dosage: 300 MG
     Dates: start: 20210611, end: 20210926
  36. CLOZAPINE [Suspect]
     Active Substance: CLOZAPINE
     Dosage: 400 MG
     Dates: start: 20211215, end: 20220309
  37. CLOZAPINE [Suspect]
     Active Substance: CLOZAPINE
     Dosage: 375 MG
     Dates: start: 20220310, end: 20220313
  38. CLOZAPINE [Suspect]
     Active Substance: CLOZAPINE
     Dosage: 300 MG
     Dates: start: 20220314, end: 20220324

REACTIONS (3)
  - Hospitalisation [Unknown]
  - Treatment noncompliance [Recovered/Resolved]
  - Unevaluable event [Unknown]

NARRATIVE: CASE EVENT DATE: 20191220
